APPROVED DRUG PRODUCT: EFIDAC 24 PSEUDOEPHEDRINE HYDROCHLORIDE/BROMPHENIRAMINE MALEATE
Active Ingredient: BROMPHENIRAMINE MALEATE; PSEUDOEPHEDRINE HYDROCHLORIDE
Strength: 16MG;240MG
Dosage Form/Route: TABLET, EXTENDED RELEASE;ORAL
Application: N019672 | Product #001
Applicant: ALZA CORP
Approved: Mar 29, 1996 | RLD: No | RS: No | Type: DISCN